FAERS Safety Report 4807982-4 (Version None)
Quarter: 2005Q4

REPORT INFORMATION
  Report Type: 
  Country: None (occurrence: None)
  Receive Date: 20051020
  Receipt Date: 20051004
  Transmission Date: 20060501
  Serious: Yes (Death)
  Sender: FDA-Public Use
  Company Number: 0510016

PATIENT
  Age: 1 Year
  Sex: Male
  Weight: 0.4536 kg

DRUGS (1)
  1. NITISINONE/COMPASS.USE [Suspect]
     Indication: TYROSINAEMIA
     Dosage: 0.5 MG/KG/DAY
     Dates: start: 20050823, end: 20050826

REACTIONS (1)
  - DEATH [None]
